FAERS Safety Report 12777795 (Version 1)
Quarter: 2016Q3

REPORT INFORMATION
  Report Type: Spontaneous
  Country: US (occurrence: US)
  Receive Date: 20160924
  Receipt Date: 20160924
  Transmission Date: 20161109
  Serious: No
  Sender: FDA-Public Use
  Company Number: US-JAZZ-2016-US-010605

PATIENT
  Sex: Female

DRUGS (14)
  1. VYVANSE [Concomitant]
     Active Substance: LISDEXAMFETAMINE DIMESYLATE
  2. COENZYME Q10 [Concomitant]
     Active Substance: UBIDECARENONE
  3. PRAVASTATIN SODIUM. [Concomitant]
     Active Substance: PRAVASTATIN SODIUM
  4. XYREM [Suspect]
     Active Substance: SODIUM OXYBATE
     Dosage: 4.5 G, BID
     Route: 048
     Dates: start: 200503
  5. ARMOUR THYROID [Concomitant]
     Active Substance: THYROID, PORCINE
  6. VITAMIN D3 [Concomitant]
     Active Substance: CHOLECALCIFEROL
  7. PROGESTERONE. [Concomitant]
     Active Substance: PROGESTERONE
  8. XYREM [Suspect]
     Active Substance: SODIUM OXYBATE
     Indication: NARCOLEPSY
     Dosage: 1.5 G, BID
     Route: 048
     Dates: start: 200407, end: 200410
  9. PRAVACHOL [Concomitant]
     Active Substance: PRAVASTATIN SODIUM
  10. ZOLOFT [Concomitant]
     Active Substance: SERTRALINE HYDROCHLORIDE
  11. IMITREX [Concomitant]
     Active Substance: SUMATRIPTAN SUCCINATE
  12. DHEA [Concomitant]
     Active Substance: PRASTERONE
  13. XYREM [Suspect]
     Active Substance: SODIUM OXYBATE
     Dosage: 3 G, BID
     Route: 048
     Dates: start: 200410, end: 200503
  14. TESTOSTERONE. [Concomitant]
     Active Substance: TESTOSTERONE

REACTIONS (1)
  - Sinusitis [Not Recovered/Not Resolved]
